FAERS Safety Report 8407718 (Version 4)
Quarter: 2013Q1

REPORT INFORMATION
  Report Type: Report from Study
  Country: IT (occurrence: IT)
  Receive Date: 20120215
  Receipt Date: 20130111
  Transmission Date: 20140127
  Serious: Yes (Life-Threatening, Hospitalization)
  Sender: FDA-Public Use
  Company Number: PHHO2012IT002497

PATIENT
  Age: 60 Year
  Sex: Male
  Weight: 114 kg

DRUGS (6)
  1. AMN107 [Suspect]
     Indication: CHRONIC MYELOID LEUKAEMIA
     Dosage: 150 MG, QID
     Route: 048
     Dates: start: 20120104
  2. CARDIOASPIRIN [Concomitant]
     Indication: ANTIPLATELET THERAPY
     Dosage: 100 MG, DIE
     Route: 048
     Dates: start: 20120127
  3. TIKLID [Concomitant]
     Indication: ANTIPLATELET THERAPY
     Dosage: 600 MG, DIE
     Route: 048
     Dates: start: 20120919
  4. LUCEN [Concomitant]
     Dosage: UNK
     Dates: start: 20111221
  5. PRAVASELECT [Concomitant]
     Indication: PROPHYLAXIS
     Dosage: UNK
     Dates: start: 20120411
  6. SELOKEN [Concomitant]
     Indication: PROPHYLAXIS
     Dosage: UNK
     Dates: start: 20120127

REACTIONS (1)
  - Angina unstable [Recovered/Resolved]
